FAERS Safety Report 4696191-8 (Version None)
Quarter: 2005Q2

REPORT INFORMATION
  Report Type: 
  Country: None (occurrence: None)
  Receive Date: 20050620
  Receipt Date: 20050530
  Transmission Date: 20051028
  Serious: Yes (Hospitalization)
  Sender: FDA-Public Use
  Company Number: 2003150122CA

PATIENT
  Age: 71 Year
  Sex: Female
  Weight: 49.4 kg

DRUGS (7)
  1. LINEZOLID TABLET (LINEZOLID) [Suspect]
     Indication: STAPHYLOCOCCAL INFECTION
     Dosage: 1200 MG (600 MG, TWICE DAILY) ORAL
     Route: 048
     Dates: start: 20020227, end: 20021020
  2. ACCURETIC [Suspect]
     Indication: ILL-DEFINED DISORDER
     Dosage: 25 MG (25 MG DAILY) ORAL
     Route: 048
     Dates: start: 20020814, end: 20021021
  3. OXAZEPAM [Concomitant]
  4. LORAZEPAM [Concomitant]
  5. CAFFEINE/CODEINE PHOSPHATE/PARACETAMOL [Concomitant]
  6. FUROSEMIDE [Concomitant]
  7. ATROVENT [Concomitant]

REACTIONS (4)
  - APLASIA PURE RED CELL [None]
  - HYPOAESTHESIA [None]
  - IRON DEFICIENCY ANAEMIA [None]
  - NEUROPATHY PERIPHERAL [None]
